FAERS Safety Report 5015917-7 (Version None)
Quarter: 2006Q2

REPORT INFORMATION
  Report Type: 
  Country: None (occurrence: None)
  Receive Date: 20060525
  Receipt Date: 20060505
  Transmission Date: 20061013
  Serious: Yes (Other)
  Sender: FDA-Public Use
  Company Number: DE200604004352

PATIENT
  Age: 36 Year
  Sex: Male
  Weight: 140 kg

DRUGS (3)
  1. ZYPREXA [Suspect]
     Indication: DELUSIONAL DISORDER, PERSECUTORY TYPE
     Dosage: 15 MG, DAILY (1/D), ORAL
     Route: 048
     Dates: end: 20060407
  2. CARMEN (LERCANIDIPINE) [Concomitant]
  3. RAMIPRIL [Concomitant]

REACTIONS (5)
  - ATRIOVENTRICULAR BLOCK SECOND DEGREE [None]
  - BUNDLE BRANCH BLOCK LEFT [None]
  - DIZZINESS [None]
  - OBESITY [None]
  - VENTRICULAR EXTRASYSTOLES [None]
